FAERS Safety Report 25023505 (Version 1)
Quarter: 2025Q1

REPORT INFORMATION
  Report Type: Spontaneous
  Country: US (occurrence: None)
  Receive Date: 20250227
  Receipt Date: 20250227
  Transmission Date: 20250409
  Serious: Yes (Death)
  Sender: FDA-CTU
  Company Number: None

PATIENT
  Age: 62 Year
  Sex: Male
  Weight: 83.8 kg

DRUGS (2)
  1. YESCARTA [Suspect]
     Active Substance: AXICABTAGENE CILOLEUCEL
     Indication: Diffuse large B-cell lymphoma
     Route: 042
     Dates: start: 20250205, end: 20250205
  2. YESCARTA [Concomitant]
     Active Substance: AXICABTAGENE CILOLEUCEL
     Dates: start: 20250205, end: 20250205

REACTIONS (18)
  - Lymphocyte adoptive therapy [None]
  - Cytokine release syndrome [None]
  - Acute kidney injury [None]
  - Haemophagocytic lymphohistiocytosis [None]
  - Atrial fibrillation [None]
  - Tumour lysis syndrome [None]
  - Haemofiltration [None]
  - Haemophagocytic lymphohistiocytosis [None]
  - Hypofibrinogenaemia [None]
  - Hypoglycaemia [None]
  - Metabolic acidosis [None]
  - Respiratory distress [None]
  - Shock [None]
  - Gastrointestinal haemorrhage [None]
  - Starvation ketoacidosis [None]
  - Pupil fixed [None]
  - Multiple organ dysfunction syndrome [None]
  - Cardio-respiratory arrest [None]
